FAERS Safety Report 21942741 (Version 3)
Quarter: 2023Q2

REPORT INFORMATION
  Report Type: Report from Study
  Country: US (occurrence: US)
  Receive Date: 20230202
  Receipt Date: 20230526
  Transmission Date: 20230722
  Serious: Yes (Other)
  Sender: FDA-Public Use
  Company Number: US-ABBVIE-4286555

PATIENT
  Age: 64 Year
  Sex: Female

DRUGS (2)
  1. HUMIRA [Suspect]
     Active Substance: ADALIMUMAB
     Indication: Psoriatic arthropathy
     Dosage: CITRATE FREE
     Route: 058
  2. HUMIRA [Suspect]
     Active Substance: ADALIMUMAB
     Indication: Rheumatoid arthritis
     Dosage: CITRATE FREE
     Route: 058
     Dates: start: 20180120

REACTIONS (10)
  - Corneal transplant [Recovering/Resolving]
  - Blindness [Unknown]
  - Infection [Unknown]
  - Retinal oedema [Unknown]
  - Procedural complication [Recovering/Resolving]
  - Ocular discomfort [Unknown]
  - Shoulder fracture [Recovered/Resolved]
  - Cataract [Recovering/Resolving]
  - Device physical property issue [Unknown]
  - Altered visual depth perception [Unknown]

NARRATIVE: CASE EVENT DATE: 20220901
